FAERS Safety Report 19719504 (Version 1)
Quarter: 2021Q3

REPORT INFORMATION
  Report Type: Spontaneous
  Country: US (occurrence: US)
  Receive Date: 20210818
  Receipt Date: 20210818
  Transmission Date: 20211014
  Serious: Yes (Other)
  Sender: FDA-Public Use
  Company Number: None

PATIENT
  Age: 63 Year

DRUGS (7)
  1. LISINOPRIL. [Concomitant]
     Active Substance: LISINOPRIL
  2. TAMSULOSIN [Concomitant]
     Active Substance: TAMSULOSIN
  3. REGEN?COV [Suspect]
     Active Substance: CASIRIVIMAB\IMDEVIMAB
     Dosage: ?          OTHER ROUTE:IV?
     Route: 042
     Dates: start: 20210818, end: 20210818
  4. FENOFIBRATE. [Concomitant]
     Active Substance: FENOFIBRATE
  5. FINASTERIDE. [Concomitant]
     Active Substance: FINASTERIDE
  6. BUPROPRIEN SR [Concomitant]
  7. EMTRICTABINE?TENOFOVIR [Concomitant]

REACTIONS (7)
  - Oxygen saturation decreased [None]
  - Pruritus [None]
  - Infusion related reaction [None]
  - Cough [None]
  - Throat irritation [None]
  - Erythema [None]
  - Dyspnoea [None]

NARRATIVE: CASE EVENT DATE: 20210818
